FAERS Safety Report 8141236-6 (Version None)
Quarter: 2012Q1

REPORT INFORMATION
  Report Type: 
  Country: None (occurrence: None)
  Receive Date: 20120216
  Receipt Date: 20120209
  Transmission Date: 20120608
  Serious: Yes (Hospitalization)
  Sender: FDA-Public Use
  Company Number: US-BAYER-2011-072616

PATIENT
  Age: 38 Year
  Sex: Female
  Weight: 95.238 kg

DRUGS (4)
  1. MAXALT-MLT [Concomitant]
     Indication: MIGRAINE
     Dosage: UNK
     Route: 048
     Dates: start: 19830101, end: 20100401
  2. AMBIEN [Concomitant]
     Route: 048
  3. YAZ [Suspect]
     Indication: PREMENSTRUAL SYNDROME
     Dosage: UNK
     Dates: start: 20080301, end: 20080701
  4. NSAID'S [Concomitant]
     Dosage: UNK UNK, PRN
     Route: 048

REACTIONS (8)
  - PULMONARY EMBOLISM [None]
  - DYSPNOEA [None]
  - CHEST PAIN [None]
  - ANXIETY [None]
  - INJURY [None]
  - ANHEDONIA [None]
  - PAIN [None]
  - PLEURAL EFFUSION [None]
